FAERS Safety Report 14169017 (Version 1)
Quarter: 2017Q4

REPORT INFORMATION
  Report Type: Spontaneous
  Country: US (occurrence: None)
  Receive Date: 20171107
  Receipt Date: 20171107
  Transmission Date: 20180321
  Serious: No
  Sender: FDA-Public Use
  Company Number: None

PATIENT
  Age: 16 Year
  Sex: Male

DRUGS (1)
  1. SPRYCEL [Suspect]
     Active Substance: DASATINIB
     Dosage: 80 MG/100 MG QOD ORAL - ALTERNATING DOSE
     Route: 048

REACTIONS (2)
  - Stomatitis [None]
  - Muscle spasms [None]

NARRATIVE: CASE EVENT DATE: 20171105
